FAERS Safety Report 9352545 (Version 2)
Quarter: 2013Q3

REPORT INFORMATION
  Report Type: Spontaneous
  Country: US (occurrence: US)
  Receive Date: 20130618
  Receipt Date: 20130730
  Transmission Date: 20140515
  Serious: Yes (Hospitalization)
  Sender: FDA-Public Use
  Company Number: US-009507513-1306USA005465

PATIENT
  Age: 78 Year
  Sex: Male

DRUGS (1)
  1. TICE BCG LIVE [Suspect]
     Indication: BLADDER CANCER STAGE 0, WITH CANCER IN SITU
     Dosage: 15 WEEKLY INTRAVESICAL BCG INSTILLATIONS
     Route: 043

REACTIONS (1)
  - Bovine tuberculosis [Recovered/Resolved]
